FAERS Safety Report 14016626 (Version 1)
Quarter: 2017Q3

REPORT INFORMATION
  Report Type: Report from Study
  Country: None (occurrence: RO)
  Receive Date: 20170927
  Receipt Date: 20170927
  Transmission Date: 20171128
  Serious: Yes (Hospitalization)
  Sender: FDA-Public Use
  Company Number: RO-ABBVIE-17K-135-2112318-00

PATIENT
  Age: 80 Year
  Sex: Male

DRUGS (1)
  1. DUODOPA [Suspect]
     Active Substance: CARBIDOPA\LEVODOPA
     Indication: PARKINSON^S DISEASE
     Dosage: 16/24: MD=11, CR=5, ED=2.5
     Route: 050
     Dates: start: 20150317

REACTIONS (3)
  - Varicocele [Recovering/Resolving]
  - Inguinal hernia [Recovering/Resolving]
  - Exomphalos [Recovering/Resolving]

NARRATIVE: CASE EVENT DATE: 20170920
